FAERS Safety Report 12612423 (Version 2)
Quarter: 2016Q3

REPORT INFORMATION
  Report Type: Spontaneous
  Country: US (occurrence: US)
  Receive Date: 20160801
  Receipt Date: 20160909
  Transmission Date: 20161109
  Serious: Yes (Hospitalization)
  Sender: FDA-Public Use
  Company Number: US-BAYER-2016-103371

PATIENT
  Age: 63 Year
  Sex: Male

DRUGS (5)
  1. XARELTO [Suspect]
     Active Substance: RIVAROXABAN
     Indication: PERIPHERAL VASCULAR DISORDER
     Dosage: UNK
     Route: 048
     Dates: start: 20130823, end: 20131214
  2. ACETYLSALICYLIC ACID({=100 MG) [Suspect]
     Active Substance: ASPIRIN
     Indication: PRODUCT USED FOR UNKNOWN INDICATION
     Dosage: UNK
     Route: 065
  3. XARELTO [Suspect]
     Active Substance: RIVAROXABAN
     Indication: PERIPHERAL ARTERY DISSECTION
  4. XARELTO [Suspect]
     Active Substance: RIVAROXABAN
     Indication: VASCULAR GRAFT
  5. XARELTO [Suspect]
     Active Substance: RIVAROXABAN
     Indication: INTERMITTENT CLAUDICATION

REACTIONS (5)
  - Coagulopathy [Unknown]
  - Off label use [Unknown]
  - Acute kidney injury [Recovering/Resolving]
  - Product use issue [Unknown]
  - Rectal haemorrhage [Recovering/Resolving]

NARRATIVE: CASE EVENT DATE: 20130823
